FAERS Safety Report 8660491 (Version 2)
Quarter: 2013Q2

REPORT INFORMATION
  Report Type: Report from Study
  Country: JP (occurrence: JP)
  Receive Date: 20120711
  Receipt Date: 20130419
  Transmission Date: 20140414
  Serious: Yes (Hospitalization)
  Sender: FDA-Public Use
  Company Number: JP-VERTEX PHARMACEUTICALS INC.-AE-2012-009981

PATIENT
  Age: 61 Year
  Sex: Female

DRUGS (15)
  1. VX-950 (TELAPREVIR) [Suspect]
     Indication: CHRONIC HEPATITIS C
     Dosage: 2250 MG, QD
     Route: 048
     Dates: start: 20120510, end: 20120603
  2. VX-950 (TELAPREVIR) [Suspect]
     Dosage: 2250 MG, QD
     Route: 048
     Dates: start: 20120605
  3. REBETOL [Concomitant]
     Indication: CHRONIC HEPATITIS C
     Dosage: 600 MG, QD
     Route: 048
     Dates: start: 20120510, end: 20120527
  4. REBETOL [Concomitant]
     Dosage: 400 MG, QD
     Route: 048
     Dates: start: 20120528, end: 20120603
  5. REBETOL [Concomitant]
     Dosage: 200 MG, QD
     Route: 048
     Dates: start: 20120604
  6. PEGINTERFERON ALFA-2B [Concomitant]
     Indication: CHRONIC HEPATITIS C
     Dosage: 1.5, ?G/KG QW
     Route: 058
     Dates: start: 20120510
  7. AMLODIN OD [Concomitant]
     Dosage: 5 MG, QD
     Route: 048
  8. GASTER D [Concomitant]
     Dosage: 20 MG, QD
     Route: 048
  9. BAYASPIRIN [Concomitant]
     Dosage: 100 MG, QD
     Route: 048
  10. JUVELA [Concomitant]
     Dosage: 150 MG, QD
     Route: 048
  11. LAXOBERON [Concomitant]
     Dosage: 10 GTT, PRN
     Route: 048
  12. EVAMYL [Concomitant]
     Dosage: 1 MG, QD
     Route: 048
  13. PURSENNID [Concomitant]
     Dosage: 12 MG, QD
     Route: 048
  14. LOXONIN [Concomitant]
     Dosage: 60 MG, PRN
     Route: 048
     Dates: start: 20120523
  15. MUCOSTA [Concomitant]
     Dosage: 100 MG, QD
     Route: 048
     Dates: start: 20120523

REACTIONS (4)
  - Dizziness [Recovered/Resolved]
  - Headache [Recovered/Resolved]
  - Hypoaesthesia [Recovered/Resolved]
  - Vomiting [Recovered/Resolved]
